FAERS Safety Report 5844336-6 (Version None)
Quarter: 2008Q3

REPORT INFORMATION
  Report Type: 
  Country: None (occurrence: None)
  Receive Date: 20080813
  Receipt Date: 20080811
  Transmission Date: 20090109
  Serious: Yes (Death, Hospitalization)
  Sender: FDA-Public Use
  Company Number: GB-BOEHRINGER INGELHEIM GMBH, GERMANY-2008-UK-01446UK

PATIENT
  Age: 79 Year
  Sex: Female

DRUGS (16)
  1. TIOTROPIUM (00015/0190/A) [Suspect]
     Indication: CHRONIC OBSTRUCTIVE PULMONARY DISEASE
     Route: 055
     Dates: start: 20080711, end: 20080714
  2. ADIZEM-XL [Concomitant]
  3. AMITRIPTYLINE HCL [Concomitant]
  4. ASPIRIN [Concomitant]
  5. CALCICHEW [Concomitant]
     Dosage: 2 DF
  6. CLENIL MODULITE [Concomitant]
     Route: 055
  7. DOCUSATE [Concomitant]
  8. FUROSEMIDE [Concomitant]
  9. NITROGLYCERIN [Concomitant]
  10. ISMN [Concomitant]
  11. LORATADINE [Concomitant]
  12. ORAMORPH SR [Concomitant]
  13. PARACETAMOL [Concomitant]
  14. SALMETEROL [Concomitant]
     Route: 055
  15. SIMVASTATIN [Concomitant]
  16. THEOPHYLLINE [Concomitant]

REACTIONS (2)
  - OEDEMA MOUTH [None]
  - PNEUMONIA [None]
